FAERS Safety Report 16430636 (Version 6)
Quarter: 2020Q2

REPORT INFORMATION
  Report Type: Spontaneous
  Country: JP (occurrence: JP)
  Receive Date: 20190614
  Receipt Date: 20200619
  Transmission Date: 20200713
  Serious: Yes (Hospitalization, Other)
  Sender: FDA-Public Use
  Company Number: JP-ASTRAZENECA-2019SE86366

PATIENT
  Age: 52 Year
  Sex: Female
  Weight: 42 kg

DRUGS (3)
  1. LYNPARZA [Suspect]
     Active Substance: OLAPARIB
     Indication: OVARIAN CANCER
     Route: 048
     Dates: start: 2019
  2. LYNPARZA [Suspect]
     Active Substance: OLAPARIB
     Indication: OVARIAN CANCER
     Route: 048
     Dates: start: 20190315, end: 201906
  3. METOCLOPRAMIDE. [Concomitant]
     Active Substance: METOCLOPRAMIDE
     Indication: OVARIAN CANCER
     Dosage: DOSE UNKNOWN
     Route: 065

REACTIONS (6)
  - Overdose [Unknown]
  - Pyrexia [Unknown]
  - Liver disorder [Unknown]
  - Interstitial lung disease [Recovered/Resolved]
  - Lung disorder [Unknown]
  - Anaemia [Recovered/Resolved]

NARRATIVE: CASE EVENT DATE: 20190524
